FAERS Safety Report 9472917 (Version 1)
Quarter: 2013Q3

REPORT INFORMATION
  Report Type: Spontaneous
  Country: US (occurrence: US)
  Receive Date: 20130823
  Receipt Date: 20130823
  Transmission Date: 20140515
  Serious: No
  Sender: FDA-Public Use
  Company Number: US-BRISTOL-MYERS SQUIBB COMPANY-17227604

PATIENT
  Age: 61 Year
  Sex: Male
  Weight: 81.63 kg

DRUGS (5)
  1. SPRYCEL [Suspect]
     Indication: CHRONIC MYELOID LEUKAEMIA
     Dosage: INITIALLY 70MG TWICE DAILY.?REDUCED TO ONCE DAILY.?STRTED AUG-12 APPROX.
     Route: 048
     Dates: start: 2012
  2. FLOMAX [Concomitant]
  3. GABAPENTIN [Concomitant]
  4. MOTRIN [Concomitant]
  5. LUMIGAN [Concomitant]

REACTIONS (4)
  - Diarrhoea [Unknown]
  - Dyspnoea [Unknown]
  - Haemoglobin decreased [Unknown]
  - Abdominal discomfort [Unknown]
